FAERS Safety Report 7002339-2 (Version None)
Quarter: 2010Q3

REPORT INFORMATION
  Report Type: 
  Country: None (occurrence: None)
  Receive Date: 20100920
  Receipt Date: 20071002
  Transmission Date: 20110219
  Serious: Yes (Hospitalization, Other)
  Sender: FDA-Public Use
  Company Number: US-ASTRAZENECA-2006UW23342

PATIENT
  Age: 62 Year
  Sex: Female
  Weight: 52.2 kg

DRUGS (8)
  1. SEROQUEL [Suspect]
     Indication: SCHIZOPHRENIA
     Route: 048
     Dates: start: 20030101, end: 20050101
  2. SEROQUEL [Suspect]
     Indication: DEPRESSION
     Route: 048
     Dates: start: 20030101, end: 20050101
  3. SEROQUEL [Suspect]
     Indication: ANXIETY
     Route: 048
     Dates: start: 20030101, end: 20050101
  4. SEROQUEL [Suspect]
     Route: 048
     Dates: start: 20051007
  5. SEROQUEL [Suspect]
     Route: 048
     Dates: start: 20051007
  6. SEROQUEL [Suspect]
     Route: 048
     Dates: start: 20051007
  7. EFFEXOR [Concomitant]
     Dosage: 150-300 MG
     Dates: start: 20050715
  8. RISPERDAL [Concomitant]
     Dates: start: 20040415

REACTIONS (3)
  - DIABETES MELLITUS [None]
  - PANCREATITIS ACUTE [None]
  - TYPE 2 DIABETES MELLITUS [None]
